FAERS Safety Report 25287420 (Version 3)
Quarter: 2025Q2

REPORT INFORMATION
  Report Type: Spontaneous
  Country: IL (occurrence: IL)
  Receive Date: 20250509
  Receipt Date: 20250605
  Transmission Date: 20250716
  Serious: Yes (Death, Hospitalization)
  Sender: GENMAB
  Company Number: IL-ABBVIE-6270832

PATIENT
  Age: 65 Year
  Sex: Male

DRUGS (1)
  1. EPCORITAMAB [Suspect]
     Active Substance: EPCORITAMAB
     Indication: Diffuse large B-cell lymphoma
     Route: 058
     Dates: start: 20240228, end: 202504

REACTIONS (3)
  - Pulmonary haemorrhage [Fatal]
  - Sepsis [Unknown]
  - Pneumonia [Unknown]

NARRATIVE: CASE EVENT DATE: 20250201
